FAERS Safety Report 8399535-9 (Version None)
Quarter: 2012Q2

REPORT INFORMATION
  Report Type: 
  Country: None (occurrence: None)
  Receive Date: 20120531
  Receipt Date: 20120521
  Transmission Date: 20120825
  Serious: Yes (Hospitalization, Other)
  Sender: FDA-Public Use
  Company Number: US-MERCK-1111USA01979

PATIENT
  Age: 61 Year
  Sex: Female
  Weight: 68 kg

DRUGS (11)
  1. FOSAMAX [Suspect]
     Indication: BONE DENSITY DECREASED
     Route: 048
     Dates: start: 20021218, end: 20040901
  2. CALCIUM (UNSPECIFIED) AND VITAMIN D (UNSPECIFIED) [Concomitant]
     Route: 065
  3. GEMFIBROZIL [Concomitant]
     Route: 065
  4. FOSAMAX [Suspect]
     Route: 048
     Dates: start: 20040901, end: 20071019
  5. MECLIZINE HYDROCHLORIDE [Concomitant]
     Route: 065
  6. TOBRADEX [Concomitant]
     Route: 001
  7. AVELOX [Concomitant]
     Route: 065
  8. FOSAMAX [Suspect]
     Route: 048
     Dates: start: 20040901, end: 20071019
  9. FOSAMAX [Suspect]
     Indication: OSTEOPENIA
     Route: 048
     Dates: start: 20021218, end: 20040901
  10. TYLENOL [Concomitant]
     Route: 065
  11. GINGER [Concomitant]
     Route: 065

REACTIONS (47)
  - DIVERTICULUM [None]
  - VISION BLURRED [None]
  - RHEUMATOID ARTHRITIS [None]
  - PNEUMONIA [None]
  - JOINT INJURY [None]
  - OSTEONECROSIS OF JAW [None]
  - CATARACT [None]
  - CONNECTIVE TISSUE DISORDER [None]
  - DRY MOUTH [None]
  - ECZEMA [None]
  - TOOTH FRACTURE [None]
  - TENDON DISORDER [None]
  - SEBORRHOEIC KERATOSIS [None]
  - ASTHENIA [None]
  - SCIATICA [None]
  - EPIGASTRIC DISCOMFORT [None]
  - IMPAIRED HEALING [None]
  - ACUTE SINUSITIS [None]
  - CHEILITIS [None]
  - BLOOD GLUCOSE INCREASED [None]
  - SJOGREN'S SYNDROME [None]
  - RENAL MASS [None]
  - HYPERKERATOSIS [None]
  - SEBORRHOEIC DERMATITIS [None]
  - VULVOVAGINAL DRYNESS [None]
  - PAIN IN EXTREMITY [None]
  - ORAL CANDIDIASIS [None]
  - VARICOSE VEIN [None]
  - URINARY TRACT INFECTION [None]
  - PEPTIC ULCER [None]
  - ORAL DISORDER [None]
  - MOUTH ULCERATION [None]
  - GLOSSITIS [None]
  - ORAL DISCOMFORT [None]
  - BURSITIS [None]
  - GINGIVITIS [None]
  - TEMPOROMANDIBULAR JOINT SYNDROME [None]
  - INCISIONAL HERNIA [None]
  - ROSACEA [None]
  - HAEMATOCHEZIA [None]
  - BLOOD PRESSURE INADEQUATELY CONTROLLED [None]
  - DERMATITIS CONTACT [None]
  - DIVERTICULITIS [None]
  - JOINT SWELLING [None]
  - ORAL TORUS [None]
  - BUNDLE BRANCH BLOCK RIGHT [None]
  - APHTHOUS STOMATITIS [None]
